FAERS Safety Report 24623972 (Version 2)
Quarter: 2024Q4

REPORT INFORMATION
  Report Type: Report from Study
  Country: US (occurrence: US)
  Receive Date: 20241115
  Receipt Date: 20241121
  Transmission Date: 20250115
  Serious: Yes (Life-Threatening, Other)
  Sender: PFIZER
  Company Number: US-PFIZER INC-PV202400147090

PATIENT

DRUGS (1)
  1. PLACEBO [Suspect]
     Active Substance: PLACEBO
     Indication: Depression
     Dosage: 0.5 MG/KG OVER 10 MINUTES

REACTIONS (2)
  - Seizure [Unknown]
  - Depressed level of consciousness [Unknown]
